FAERS Safety Report 5214371-X (Version None)
Quarter: 2007Q1

REPORT INFORMATION
  Report Type: 
  Country: None (occurrence: None)
  Receive Date: 20070122
  Receipt Date: 20070111
  Transmission Date: 20070707
  Serious: Yes (Other)
  Sender: FDA-Public Use
  Company Number: BE-GLAXOSMITHKLINE-B0452190A

PATIENT
  Age: 70 Year
  Sex: Male
  Weight: 124 kg

DRUGS (5)
  1. AVANDIA [Suspect]
     Dosage: 4MG PER DAY
     Route: 048
     Dates: start: 20060401, end: 20060601
  2. PANTOZOL [Concomitant]
     Route: 048
  3. GLUCOPHAGE [Concomitant]
     Dosage: 500MG THREE TIMES PER DAY
     Route: 048
  4. ATACAND [Concomitant]
     Indication: HYPERTENSION
     Route: 048
  5. KREDEX [Concomitant]
     Indication: HYPERTENSION
     Route: 048

REACTIONS (2)
  - HYPERTRIGLYCERIDAEMIA [None]
  - WEIGHT INCREASED [None]
